FAERS Safety Report 9907919 (Version 1)
Quarter: 2014Q1

REPORT INFORMATION
  Report Type: Spontaneous
  Country: US (occurrence: US)
  Receive Date: 20140219
  Receipt Date: 20140219
  Transmission Date: 20141002
  Serious: No
  Sender: FDA-Public Use
  Company Number: US-BIOGENIDEC-2014BI015563

PATIENT
  Age: 53 Year
  Sex: Female

DRUGS (10)
  1. TECFIDERA [Suspect]
     Indication: MULTIPLE SCLEROSIS
     Route: 048
     Dates: start: 20140203, end: 20140209
  2. TECFIDERA [Suspect]
     Indication: MULTIPLE SCLEROSIS
     Route: 048
     Dates: start: 20140210
  3. PROVIGIL [Concomitant]
  4. AMBIEN [Concomitant]
  5. PRAVASTATIN [Concomitant]
  6. VALIUM [Concomitant]
  7. VITAMIN D [Concomitant]
  8. VITAMIN C [Concomitant]
  9. CALCIUM [Concomitant]
  10. MAGNESIUM [Concomitant]

REACTIONS (2)
  - Migraine [Recovered/Resolved]
  - Vomiting [Recovered/Resolved]
